FAERS Safety Report 5318480-6 (Version None)
Quarter: 2007Q2

REPORT INFORMATION
  Report Type: 
  Country: None (occurrence: None)
  Receive Date: 20070501
  Receipt Date: 20070420
  Transmission Date: 20071010
  Serious: Yes (Other)
  Sender: FDA-Public Use
  Company Number: GXKR2007GB03704

PATIENT
  Sex: Female
  Weight: 3260 kg

DRUGS (2)
  1. METFORMIN HCL [Suspect]
     Dosage: TRANSPLACENTAL
     Route: 064
  2. INSULIN(INSULIN) [Suspect]
     Dosage: TRANSPLACENTAL
     Route: 064

REACTIONS (3)
  - DRUG EXPOSURE DURING PREGNANCY [None]
  - FOETAL MACROSOMIA [None]
  - PREMATURE BABY [None]
